FAERS Safety Report 7678777-1 (Version None)
Quarter: 2011Q3

REPORT INFORMATION
  Report Type: 
  Country: None (occurrence: None)
  Receive Date: 20110811
  Receipt Date: 20110803
  Transmission Date: 20111222
  Serious: Yes (Other)
  Sender: FDA-Public Use
  Company Number: US-ASTRAZENECA-2011SE46653

PATIENT
  Sex: Female

DRUGS (3)
  1. PLAVIX [Concomitant]
  2. PREVACID [Concomitant]
  3. NEXIUM [Suspect]
     Route: 048

REACTIONS (4)
  - GASTRIC DISORDER [None]
  - DRUG DOSE OMISSION [None]
  - MALAISE [None]
  - RENAL FAILURE [None]
